FAERS Safety Report 25975221 (Version 1)
Quarter: 2025Q4

REPORT INFORMATION
  Report Type: Spontaneous
  Country: US (occurrence: US)
  Receive Date: 20251029
  Receipt Date: 20251029
  Transmission Date: 20260117
  Serious: No
  Sender: VERTEX
  Company Number: US-VERTEX PHARMACEUTICALS-2025-017968

PATIENT
  Sex: Female

DRUGS (2)
  1. ALYFTREK [Suspect]
     Active Substance: DEUTIVACAFTOR\TEZACAFTOR\VANZACAFTOR
     Indication: Cystic fibrosis
     Dosage: 2 TABLETS (VANZACAFTOR/TEZACAFTOR/DEUTIVACAFTOR), QD
     Route: 048
  2. ALYFTREK [Suspect]
     Active Substance: DEUTIVACAFTOR\TEZACAFTOR\VANZACAFTOR
     Dosage: DOSE REDUCED 1 TABLET (VANZACAFTOR/TEZACAFTOR/DEUTIVACAFTOR), QD
     Route: 048

REACTIONS (1)
  - Anxiety [Recovering/Resolving]
